FAERS Safety Report 12784319 (Version 1)
Quarter: 2016Q3

REPORT INFORMATION
  Report Type: Spontaneous
  Country: DE (occurrence: DE)
  Receive Date: 20160927
  Receipt Date: 20160927
  Transmission Date: 20161109
  Serious: Yes (Life-Threatening, Other)
  Sender: FDA-Public Use
  Company Number: DE-BEH-SAGL/01/19/GFR

PATIENT
  Age: 58 Year
  Sex: Female
  Weight: 75 kg

DRUGS (4)
  1. INTERFERON BETA NOS [Concomitant]
     Active Substance: INTERFERON BETA
     Dates: start: 1997
  2. SANDOGLOBULIN [Suspect]
     Active Substance: HUMAN IMMUNOGLOBULIN G
     Indication: MULTIPLE SCLEROSIS
     Dosage: DAILY DOSE QUANTITY: 30, DAILY DOSE UNIT: G
     Route: 042
     Dates: start: 20010205, end: 20010205
  3. SANDOGLOBULIN [Suspect]
     Active Substance: HUMAN IMMUNOGLOBULIN G
     Dosage: DAILY DOSE QUANTITY: 30, DAILY DOSE UNIT: G
     Route: 042
     Dates: start: 20010109, end: 20010109
  4. BELOC-ZOC MITE [Concomitant]
     Active Substance: METOPROLOL SUCCINATE
     Dates: start: 2000

REACTIONS (13)
  - Pulmonary oedema [Unknown]
  - Pulmonary oedema [Unknown]
  - Hypersensitivity [Unknown]
  - Hypersensitivity [Recovered/Resolved]
  - Pain [Unknown]
  - Rales [Unknown]
  - Renal pain [Unknown]
  - Headache [Unknown]
  - Hypersensitivity [Recovered/Resolved]
  - Hypersensitivity [Unknown]
  - Pain [Unknown]
  - Dyspnoea [Unknown]
  - Dyspnoea [Unknown]

NARRATIVE: CASE EVENT DATE: 20010110
